FAERS Safety Report 25264581 (Version 1)
Quarter: 2025Q2

REPORT INFORMATION
  Report Type: Spontaneous
  Country: DK (occurrence: DK)
  Receive Date: 20250502
  Receipt Date: 20250502
  Transmission Date: 20250717
  Serious: Yes (Death, Other)
  Sender: BRACCO
  Company Number: None

PATIENT
  Age: 77 Year
  Sex: Female

DRUGS (8)
  1. IOMERON [Suspect]
     Active Substance: IOMEPROL
     Indication: X-ray with contrast
     Route: 048
     Dates: start: 20250323, end: 20250323
  2. ATORVASTATIN [Concomitant]
     Active Substance: ATORVASTATIN
     Indication: Cardiovascular event prophylaxis
     Dosage: 80 MG, QD
     Dates: start: 20180618
  3. FENOTEROL HYDROBROMIDE\IPRATROPIUM BROMIDE [Concomitant]
     Active Substance: FENOTEROL HYDROBROMIDE\IPRATROPIUM BROMIDE
     Indication: Lung disorder
     Dates: start: 20161016
  4. CLOPIDOGREL [Concomitant]
     Active Substance: CLOPIDOGREL BISULFATE
     Indication: Thrombosis prophylaxis
     Dosage: 75 MG, QD
     Dates: start: 20181228
  5. EZETIMIBE [Concomitant]
     Active Substance: EZETIMIBE
     Indication: Cardiovascular event prophylaxis
     Dosage: 10 MG, QD
     Dates: start: 20240326
  6. LANSOPRAZOLE [Concomitant]
     Active Substance: LANSOPRAZOLE
     Indication: Gastric pH decreased
     Dosage: 30 MG, QD
     Dates: start: 20210906
  7. METOPROLOL [Concomitant]
     Active Substance: METOPROLOL
     Indication: Heart rate irregular
     Dosage: 50 MG, QD
     Dates: start: 20180617
  8. RAMIPRIL [Concomitant]
     Active Substance: RAMIPRIL
     Indication: Hypertension
     Dosage: 10 MG, QD
     Dates: start: 20180628

REACTIONS (4)
  - Cardiac arrest [Fatal]
  - Loss of consciousness [Unknown]
  - Depressed level of consciousness [Unknown]
  - Cold sweat [Unknown]

NARRATIVE: CASE EVENT DATE: 20250323
